FAERS Safety Report 8977628 (Version 2)
Quarter: 2013Q1

REPORT INFORMATION
  Report Type: Spontaneous
  Country: US (occurrence: US)
  Receive Date: 20121220
  Receipt Date: 20130226
  Transmission Date: 20140127
  Serious: Yes (Hospitalization)
  Sender: FDA-Public Use
  Company Number: US-GLAXOSMITHKLINE-A1006112A

PATIENT
  Sex: Male

DRUGS (1)
  1. REQUIP [Suspect]
     Dosage: 3MG UNKNOWN
     Route: 065
     Dates: start: 20110113

REACTIONS (1)
  - Hospitalisation [Unknown]
